FAERS Safety Report 9844705 (Version 4)
Quarter: 2014Q1

REPORT INFORMATION
  Report Type: Spontaneous
  Country: IT (occurrence: None)
  Receive Date: 20140122
  Receipt Date: 20140324
  Transmission Date: 20141002
  Serious: Yes (Hospitalization)
  Sender: FDA-Public Use
  Company Number: AUR-APL-2014-00462

PATIENT
  Age: 57 Year
  Sex: Female

DRUGS (3)
  1. METFORMIN [Suspect]
     Indication: DIABETES MELLITUS
     Dosage: (1700 MG,1 D)
     Route: 048
     Dates: start: 20120101, end: 20131125
  2. SOLOSA (GLIMEPIRIDE) [Concomitant]
  3. TORVAST (ATORVASTATIN CALCIUM) [Concomitant]

REACTIONS (4)
  - Metabolic acidosis [None]
  - Psychomotor hyperactivity [None]
  - Confusional state [None]
  - Disorientation [None]
